FAERS Safety Report 25009132 (Version 1)
Quarter: 2025Q1

REPORT INFORMATION
  Report Type: Spontaneous
  Country: US (occurrence: US)
  Receive Date: 20250225
  Receipt Date: 20250225
  Transmission Date: 20250409
  Serious: Yes (Other)
  Sender: PFIZER
  Company Number: US-PFIZER INC-PV202400099344

PATIENT
  Age: 46 Year
  Sex: Female

DRUGS (1)
  1. TUKYSA [Suspect]
     Active Substance: TUCATINIB
     Dosage: 150MG, TWO TABLETS TWICE A DAY

REACTIONS (2)
  - Cerebral disorder [Unknown]
  - Memory impairment [Unknown]
